FAERS Safety Report 4614256-3 (Version None)
Quarter: 2005Q1

REPORT INFORMATION
  Report Type: 
  Country: None (occurrence: None)
  Receive Date: 20050315
  Receipt Date: 20050104
  Transmission Date: 20050727
  Serious: Yes (Other)
  Sender: FDA-Public Use
  Company Number: SUS1-2005-00185

PATIENT
  Age: 64 Year
  Sex: Male

DRUGS (3)
  1. ADDERALL 15 [Suspect]
     Dosage: 20 MG, 1X/DAY; QD
     Dates: start: 20020405, end: 20020401
  2. ASPIRIN MIGRAENE (ACETYLSALICYLIC ACID) [Concomitant]
  3. NIACIN [Concomitant]

REACTIONS (4)
  - ARTERIOSPASM CORONARY [None]
  - CHEST DISCOMFORT [None]
  - NAUSEA [None]
  - PALPITATIONS [None]
